FAERS Safety Report 24247930 (Version 1)
Quarter: 2024Q3

REPORT INFORMATION
  Report Type: Spontaneous
  Country: ES (occurrence: ES)
  Receive Date: 20240826
  Receipt Date: 20240826
  Transmission Date: 20241016
  Serious: Yes (Hospitalization)
  Sender: CHEPLAPHARM
  Company Number: None

PATIENT
  Age: 47 Year
  Sex: Male

DRUGS (9)
  1. CLONAZEPAM [Interacting]
     Active Substance: CLONAZEPAM
     Dosage: 11 TABLETS WAS TAKEN AT A TIME
     Route: 048
     Dates: start: 20240703, end: 20240703
  2. OLANZAPINE [Interacting]
     Active Substance: OLANZAPINE
     Dosage: 3 TABLETS TAKEN A TIME
     Route: 048
     Dates: start: 20240703, end: 20240703
  3. PREGABALIN [Interacting]
     Active Substance: PREGABALIN
     Dosage: STRENGTH: 75MG (6 TABLETS),
     Route: 048
     Dates: start: 20240703, end: 20240703
  4. PREGABALIN [Interacting]
     Active Substance: PREGABALIN
     Dosage: STRENGTH: 25MG (3 TABLETS),
     Route: 048
     Dates: start: 20240703, end: 20240703
  5. PALEXIA [Interacting]
     Active Substance: TAPENTADOL HYDROCHLORIDE
     Dosage: 16 TABLETS TAKEN AT A TIME
     Route: 048
     Dates: start: 20240703, end: 20240703
  6. TOPIRAMATE [Interacting]
     Active Substance: TOPIRAMATE
     Dosage: TOPIRAMATE 50MG 6 TABLETS TAKEN AT A TIME
     Route: 048
     Dates: start: 20240703, end: 20240703
  7. TOPIRAMATE [Interacting]
     Active Substance: TOPIRAMATE
     Dosage: TOPIRAMATE 50MG 3 TABLETS TAKEN AT A TIME
     Route: 048
     Dates: start: 20240703, end: 20240703
  8. PAROXETINE [Interacting]
     Active Substance: PAROXETINE
     Dosage: 9 TABLETS TAKEN AT A TIME
     Route: 048
     Dates: start: 20240703, end: 20240703
  9. ACETAMINOPHEN [Interacting]
     Active Substance: ACETAMINOPHEN
     Dosage: 1G  5 TABLETS TAKEN AT A TIME
     Route: 048
     Dates: start: 20240703, end: 20240703

REACTIONS (3)
  - Depressed level of consciousness [Recovered/Resolved]
  - Trismus [Recovered/Resolved]
  - Intentional overdose [Recovered/Resolved]

NARRATIVE: CASE EVENT DATE: 20240703
